FAERS Safety Report 15449160 (Version 2)
Quarter: 2018Q4

REPORT INFORMATION
  Report Type: Spontaneous
  Country: BE (occurrence: BE)
  Receive Date: 20180930
  Receipt Date: 20181004
  Transmission Date: 20190204
  Serious: Yes (Other)
  Sender: FDA-Public Use
  Company Number: BE-BAXTER-2018BAX024556

PATIENT
  Age: 61 Year
  Sex: Female
  Weight: 73 kg

DRUGS (3)
  1. ADRIAMYCIN [Suspect]
     Active Substance: DOXORUBICIN HYDROCHLORIDE
     Indication: SMALL CELL LUNG CANCER
     Dosage: UNK, Q4WK, DOSE: 1 (UNITS NOT REPORTED)
     Route: 065
     Dates: end: 201805
  2. VEPESID [Suspect]
     Active Substance: ETOPOSIDE
     Indication: SMALL CELL LUNG CANCER
     Dosage: UNK, Q4WK, DOSE: 1(UNITS NOT REPORTED)
     Route: 065
     Dates: end: 201805
  3. ENDOXAN 1000 MG - POUDRE POUR SOLUTION INJECTABLE [Suspect]
     Active Substance: CYCLOPHOSPHAMIDE
     Indication: SMALL CELL LUNG CANCER
     Dosage: UNK, Q4WK, DOSE: 1 (UNITS NOT REPORTED)
     Route: 065
     Dates: end: 201805

REACTIONS (1)
  - Malignant neoplasm progression [Unknown]

NARRATIVE: CASE EVENT DATE: 201805
